FAERS Safety Report 20155240 (Version 2)
Quarter: 2022Q1

REPORT INFORMATION
  Report Type: Other
  Country: JP (occurrence: JP)
  Receive Date: 20211207
  Receipt Date: 20220129
  Transmission Date: 20220423
  Serious: Yes (Other)
  Sender: FDA-Public Use
  Company Number: JP-CHUGAI-2021029438

PATIENT
  Age: 44 Year
  Sex: Female

DRUGS (4)
  1. AVASTIN [Suspect]
     Active Substance: BEVACIZUMAB
     Indication: HER2 negative breast cancer
     Dosage: 10 MILLIGRAM/KILOGRAM, ONCE/2WEEKS
     Route: 041
  2. NIVOLUMAB [Suspect]
     Active Substance: NIVOLUMAB
     Indication: HER2 negative breast cancer
     Dosage: 3 MILLIGRAM/KILOGRAM, ONCE/2WEEKS
     Route: 041
  3. DEXAMETHASONE [Suspect]
     Active Substance: DEXAMETHASONE
     Indication: Chemotherapy side effect prophylaxis
     Route: 065
  4. PACLITAXEL [Concomitant]
     Active Substance: PACLITAXEL
     Indication: HER2 negative breast cancer
     Dosage: 90 MILLIGRAM/SQ. METER, ONCE/WEEK
     Route: 041

REACTIONS (4)
  - Device related thrombosis [Unknown]
  - Atypical mycobacterial infection [Unknown]
  - Device related infection [Unknown]
  - Neuropathy peripheral [Unknown]
